FAERS Safety Report 24529686 (Version 2)
Quarter: 2024Q4

REPORT INFORMATION
  Report Type: Spontaneous
  Country: US (occurrence: US)
  Receive Date: 20241021
  Receipt Date: 20241113
  Transmission Date: 20250114
  Serious: Yes (Hospitalization)
  Sender: DOMPE FARMACEUTICI
  Company Number: US-FARMAPROD-202410-3536

PATIENT
  Sex: Male
  Weight: 104.33 kg

DRUGS (37)
  1. OXERVATE [Suspect]
     Active Substance: CENEGERMIN-BKBJ
     Indication: Neurotrophic keratopathy
     Route: 047
     Dates: start: 20240930
  2. VITAMIN C [Concomitant]
     Active Substance: ASCORBIC ACID
  3. CLINDAMYCIN HYDROCHLORIDE [Concomitant]
     Active Substance: CLINDAMYCIN HYDROCHLORIDE
  4. ASPIRIN [Concomitant]
     Active Substance: ASPIRIN
  5. ASCORBIC ACID [Concomitant]
     Active Substance: ASCORBIC ACID
  6. FERROUS SULFATE [Concomitant]
     Active Substance: FERROUS SULFATE
     Dosage: 325(65) MG
  7. VITAMIN D2 [Concomitant]
     Active Substance: ERGOCALCIFEROL
  8. DOXYCYCLINE HYCLATE [Concomitant]
     Active Substance: DOXYCYCLINE HYCLATE
  9. SERTRALINE HYDROCHLORIDE [Concomitant]
     Active Substance: SERTRALINE HYDROCHLORIDE
  10. MOXIFLOXACIN [Concomitant]
     Active Substance: MOXIFLOXACIN
  11. FARXIGA [Concomitant]
     Active Substance: DAPAGLIFLOZIN PROPANEDIOL
  12. JANUVIA [Concomitant]
     Active Substance: SITAGLIPTIN PHOSPHATE
  13. NEOMYCIN-POLYMYXIN-DEXAMETH [Concomitant]
  14. ATORVASTATIN CALCIUM [Concomitant]
     Active Substance: ATORVASTATIN CALCIUM
  15. FENOFIBRATE [Concomitant]
     Active Substance: FENOFIBRATE
  16. ACETAMINOPHEN\HYDROCODONE [Concomitant]
     Active Substance: ACETAMINOPHEN\HYDROCODONE
  17. ERYTHROMYCIN [Concomitant]
     Active Substance: ERYTHROMYCIN
  18. MAGNESIUM OXIDE [Concomitant]
     Active Substance: MAGNESIUM OXIDE
  19. HYDROXYCHLOROQUINE SULFATE [Concomitant]
     Active Substance: HYDROXYCHLOROQUINE SULFATE
  20. ICOSAPENT ETHYL [Concomitant]
     Active Substance: ICOSAPENT ETHYL
  21. FUROSEMIDE [Concomitant]
     Active Substance: FUROSEMIDE
  22. LIDOCAINE [Concomitant]
     Active Substance: LIDOCAINE
     Dosage: ADHESIVE PATCH
  23. PERCOCET [Concomitant]
     Active Substance: ACETAMINOPHEN\OXYCODONE HYDROCHLORIDE
     Dosage: 5 MG-325MG
  24. RESTASIS [Concomitant]
     Active Substance: CYCLOSPORINE
  25. DEXAMETHASONE [Concomitant]
     Active Substance: DEXAMETHASONE
  26. TOUJEO MAX [Concomitant]
     Active Substance: INSULIN GLARGINE
  27. PREDNISOLONE ACETATE [Concomitant]
     Active Substance: PREDNISOLONE ACETATE
  28. FLUTICASONE PROPIONATE [Concomitant]
     Active Substance: FLUTICASONE PROPIONATE
  29. CARVEDILOL [Concomitant]
     Active Substance: CARVEDILOL
  30. AZELASTINE HYDROCHLORIDE [Concomitant]
     Active Substance: AZELASTINE HYDROCHLORIDE
     Dosage: SPRAY WITH PUMP
  31. REPAGLINIDE [Concomitant]
     Active Substance: REPAGLINIDE
  32. ZAFIRLUKAST [Concomitant]
     Active Substance: ZAFIRLUKAST
  33. VALACYCLOVIR [Concomitant]
     Active Substance: VALACYCLOVIR HYDROCHLORIDE
  34. TOUJEO [Concomitant]
     Active Substance: INSULIN GLARGINE
     Dosage: INSULIN PEN
  35. ROCKLATAN [Concomitant]
     Active Substance: LATANOPROST\NETARSUDIL MESYLATE
     Dosage: 0.02-0.005
  36. TAMSULOSIN HYDROCHLORIDE [Concomitant]
     Active Substance: TAMSULOSIN HYDROCHLORIDE
  37. FAMOTIDINE [Concomitant]
     Active Substance: FAMOTIDINE

REACTIONS (3)
  - Hip arthroplasty [Unknown]
  - Eyelid ptosis [Unknown]
  - Product dose omission issue [Unknown]
